FAERS Safety Report 9131328 (Version 1)
Quarter: 2013Q1

REPORT INFORMATION
  Report Type: Spontaneous
  Country: US (occurrence: US)
  Receive Date: 20130301
  Receipt Date: 20130301
  Transmission Date: 20140127
  Serious: Yes (Other)
  Sender: FDA-Public Use
  Company Number: US-ASTELLAS-2013US002096

PATIENT
  Sex: Male

DRUGS (2)
  1. XTANDI [Suspect]
     Indication: PRODUCT USED FOR UNKNOWN INDICATION
     Dosage: 160 MG, UNKNOWN/D
     Route: 065
     Dates: start: 2010, end: 2012
  2. XTANDI [Suspect]
     Dosage: 160 MG, UNKNOWN/D
     Route: 065
     Dates: start: 20121127, end: 201302

REACTIONS (2)
  - Drug ineffective [Unknown]
  - Surgery [Unknown]
